FAERS Safety Report 18432637 (Version 1)
Quarter: 2020Q4

REPORT INFORMATION
  Report Type: Spontaneous
  Country: DZ (occurrence: DZ)
  Receive Date: 20201027
  Receipt Date: 20201027
  Transmission Date: 20210114
  Serious: Yes (Other)
  Sender: FDA-Public Use
  Company Number: DZ-BIOVITRUM-2020DZ5651

PATIENT
  Age: 9 Year
  Sex: Female

DRUGS (1)
  1. KINERET [Suspect]
     Active Substance: ANAKINRA
     Indication: STILL^S DISEASE
     Dates: start: 2017, end: 2018

REACTIONS (5)
  - Condition aggravated [Unknown]
  - Eye disorder [Unknown]
  - Diarrhoea [Unknown]
  - Still^s disease [Unknown]
  - Urticaria [Unknown]

NARRATIVE: CASE EVENT DATE: 2018
